FAERS Safety Report 6050750-9 (Version None)
Quarter: 2009Q1

REPORT INFORMATION
  Report Type: 
  Country: None (occurrence: None)
  Receive Date: 20090126
  Receipt Date: 20080229
  Transmission Date: 20090719
  Serious: No
  Sender: FDA-Public Use
  Company Number: US-TYCO HEALTHCARE/MALLINCKRODT-T200800372

PATIENT

DRUGS (5)
  1. OPTIRAY 300 [Suspect]
     Indication: COMPUTERISED TOMOGRAM
     Dosage: 100 ML, SINGLE
     Route: 042
     Dates: start: 20080229, end: 20080229
  2. OPTIRAY 300 [Suspect]
     Dosage: 100 ML, SINGLE
     Route: 042
     Dates: start: 20080229, end: 20080229
  3. PREVACID [Concomitant]
     Route: 048
  4. RHINOCORT [Concomitant]
     Route: 045
  5. BIAXIN [Concomitant]
     Route: 048

REACTIONS (3)
  - COUGH [None]
  - EYELID OEDEMA [None]
  - RASH [None]
